FAERS Safety Report 14965305 (Version 10)
Quarter: 2020Q1

REPORT INFORMATION
  Report Type: Spontaneous
  Country: US (occurrence: US)
  Receive Date: 20180601
  Receipt Date: 20200331
  Transmission Date: 20200409
  Serious: Yes (Hospitalization)
  Sender: FDA-Public Use
  Company Number: US-ACTELION-A-NJ2018-172140

PATIENT
  Age: 63 Year
  Sex: Female
  Weight: 76.19 kg

DRUGS (7)
  1. OPSUMIT [Suspect]
     Active Substance: MACITENTAN
     Dosage: 10 MG, QD
     Route: 048
  2. UPTRAVI [Suspect]
     Active Substance: SELEXIPAG
     Dosage: 400 MCG, BID
     Route: 048
  3. OPSUMIT [Suspect]
     Active Substance: MACITENTAN
     Indication: PULMONARY ARTERIAL HYPERTENSION
     Dosage: 10 MG, QD
     Route: 048
  4. UPTRAVI [Suspect]
     Active Substance: SELEXIPAG
     Dosage: 800 MCG, BID
     Route: 048
     Dates: start: 201904
  5. ADEMPAS [Concomitant]
     Active Substance: RIOCIGUAT
  6. UPTRAVI [Suspect]
     Active Substance: SELEXIPAG
     Indication: PULMONARY ARTERIAL HYPERTENSION
     Dosage: UNK
     Route: 048
  7. UPTRAVI [Suspect]
     Active Substance: SELEXIPAG
     Dosage: 400 MCG, QPM
     Route: 048

REACTIONS (22)
  - Post procedural infection [Unknown]
  - Oedema peripheral [Unknown]
  - Neck pain [Unknown]
  - Pain [Unknown]
  - Cystitis [Unknown]
  - Myalgia [Unknown]
  - Arthralgia [Unknown]
  - Pain in jaw [Unknown]
  - Product dose omission [Unknown]
  - Feeling abnormal [Unknown]
  - Dyspnoea [Unknown]
  - Flatulence [Unknown]
  - Hernia [Unknown]
  - Sinus disorder [Unknown]
  - Abdominal distension [Not Recovered/Not Resolved]
  - Surgery [Unknown]
  - Pain in extremity [Unknown]
  - Fatigue [Unknown]
  - Drug ineffective [Unknown]
  - Diarrhoea [Recovering/Resolving]
  - Headache [Unknown]
  - Gait inability [Unknown]

NARRATIVE: CASE EVENT DATE: 20180505
